FAERS Safety Report 24546422 (Version 6)
Quarter: 2025Q4

REPORT INFORMATION
  Report Type: Report from Study
  Country: EU (occurrence: EU)
  Receive Date: 20241024
  Receipt Date: 20251222
  Transmission Date: 20260117
  Serious: Yes (Other)
  Sender: ABBVIE
  Company Number: EU-ABBVIE-5903450

PATIENT
  Age: 68 Year
  Sex: Male

DRUGS (2)
  1. FOSCARBIDOPA\FOSLEVODOPA [Suspect]
     Active Substance: FOSCARBIDOPA\FOSLEVODOPA
     Indication: Parkinson^s disease
     Dosage: CRN: 0.22 ML/H, CR: 0.27 ML/H, CRH: 0.30 ML/H, ED: 0.20 ML
     Route: 058
     Dates: start: 20240527, end: 2024
  2. FOSCARBIDOPA\FOSLEVODOPA [Suspect]
     Active Substance: FOSCARBIDOPA\FOSLEVODOPA
     Dosage: CRN 0.24 ML/H, CR 0.28 ML/H, CRH: 0.30 ML/H, ED 0.20 ML
     Route: 058
     Dates: start: 2024, end: 2024

REACTIONS (4)
  - Infusion site abscess [Not Recovered/Not Resolved]
  - Infusion site inflammation [Not Recovered/Not Resolved]
  - Bladder cancer [Not Recovered/Not Resolved]
  - General physical health deterioration [Not Recovered/Not Resolved]

NARRATIVE: CASE EVENT DATE: 20240101
